FAERS Safety Report 16280069 (Version 1)
Quarter: 2019Q2

REPORT INFORMATION
  Report Type: Report from Study
  Country: None (occurrence: US)
  Receive Date: 20190507
  Receipt Date: 20190507
  Transmission Date: 20190711
  Serious: Yes (Other)
  Sender: FDA-Public Use
  Company Number: US-ABBVIE-19K-163-2767199-00

PATIENT
  Sex: Female

DRUGS (1)
  1. HUMIRA [Suspect]
     Active Substance: ADALIMUMAB
     Indication: RHEUMATOID ARTHRITIS
     Route: 058

REACTIONS (6)
  - Injection site bruising [Not Recovered/Not Resolved]
  - Adverse event [Unknown]
  - Systemic lupus erythematosus [Unknown]
  - Contusion [Unknown]
  - General physical health deterioration [Not Recovered/Not Resolved]
  - Injection site pain [Recovered/Resolved]
